FAERS Safety Report 4768843-2 (Version None)
Quarter: 2005Q3

REPORT INFORMATION
  Report Type: 
  Country: None (occurrence: None)
  Receive Date: 20050914
  Receipt Date: 20030130
  Transmission Date: 20060218
  Serious: Yes (Hospitalization, Disabling, Other)
  Sender: FDA-Public Use
  Company Number: US-MERCK-0302USA00066

PATIENT
  Age: 63 Year
  Sex: Male
  Weight: 102 kg

DRUGS (37)
  1. TEMAZEPAM [Concomitant]
     Route: 065
  2. TAGAMET [Concomitant]
     Route: 065
  3. ZOLOFT [Concomitant]
     Route: 065
  4. ASPIRIN [Concomitant]
     Route: 065
  5. AUGMENTIN [Concomitant]
     Route: 065
  6. ZOCOR [Concomitant]
     Route: 048
  7. MOTRIN [Concomitant]
     Route: 048
  8. PLAVIX [Concomitant]
     Route: 048
  9. RELAFEN [Concomitant]
     Route: 065
  10. NITROSTAT [Concomitant]
     Route: 065
  11. ULTRAM [Concomitant]
     Route: 048
  12. ULTRACET [Concomitant]
     Route: 065
  13. ULTRACET [Concomitant]
     Route: 065
  14. CELEBREX [Concomitant]
     Route: 065
  15. CELEBREX [Concomitant]
     Route: 065
  16. TRAZODONE HYDROCHLORIDE [Concomitant]
     Route: 065
  17. TRAZODONE HYDROCHLORIDE [Concomitant]
     Route: 065
  18. TRAZODONE HYDROCHLORIDE [Concomitant]
     Route: 065
  19. BEXTRA [Concomitant]
     Route: 065
  20. BEXTRA [Concomitant]
     Route: 065
  21. FLEXERIL [Concomitant]
     Route: 065
  22. FLEXERIL [Concomitant]
     Route: 065
  23. PAXIL [Concomitant]
     Route: 065
  24. TENORMIN [Concomitant]
     Route: 065
  25. TENORMIN [Concomitant]
     Route: 065
  26. VIOXX [Suspect]
     Indication: BACK PAIN
     Route: 048
     Dates: start: 20000621, end: 20000928
  27. VIOXX [Suspect]
     Route: 048
  28. VIOXX [Suspect]
     Indication: PERICARDITIS
     Route: 048
     Dates: start: 20000621, end: 20000928
  29. VIOXX [Suspect]
     Route: 048
     Dates: start: 20010101, end: 20011026
  30. VIOXX [Suspect]
     Route: 048
     Dates: start: 20000214, end: 20000601
  31. VIOXX [Suspect]
     Route: 048
     Dates: start: 20020101
  32. VIOXX [Suspect]
     Route: 048
     Dates: start: 20000621, end: 20000928
  33. VIOXX [Suspect]
     Route: 048
  34. VIOXX [Suspect]
     Route: 048
     Dates: start: 20000621, end: 20000928
  35. VIOXX [Suspect]
     Route: 048
     Dates: start: 20010101, end: 20011026
  36. VIOXX [Suspect]
     Route: 048
     Dates: start: 20000214, end: 20000601
  37. VIOXX [Suspect]
     Route: 048
     Dates: start: 20020101

REACTIONS (53)
  - ABSCESS LIMB [None]
  - ADVERSE EVENT [None]
  - ANGINA PECTORIS [None]
  - ANXIETY [None]
  - ASTIGMATISM [None]
  - CARPAL TUNNEL SYNDROME [None]
  - CATARACT [None]
  - CERVICAL SPINAL STENOSIS [None]
  - CERVICOBRACHIAL SYNDROME [None]
  - CHEST PAIN [None]
  - CORNEAL DISORDER [None]
  - CORONARY ARTERY DISEASE [None]
  - CYSTITIS [None]
  - DEPRESSION [None]
  - DIZZINESS [None]
  - DUODENAL ULCER [None]
  - DYSPEPSIA [None]
  - DYSPHAGIA [None]
  - DYSPNOEA [None]
  - EMOTIONAL DISTRESS [None]
  - ERECTILE DYSFUNCTION [None]
  - EXOSTOSIS [None]
  - GASTRITIS [None]
  - GASTROENTERITIS HELICOBACTER [None]
  - GASTROOESOPHAGEAL REFLUX DISEASE [None]
  - HAEMATEMESIS [None]
  - HAEMORRHOIDS [None]
  - HYPERCALCAEMIA [None]
  - HYPERPARATHYROIDISM [None]
  - HYPERTENSION [None]
  - INJURY [None]
  - INSOMNIA [None]
  - INTERVERTEBRAL DISC DEGENERATION [None]
  - IRRITABILITY [None]
  - MEDIASTINITIS [None]
  - NAUSEA [None]
  - OEDEMA PERIPHERAL [None]
  - PAIN IN EXTREMITY [None]
  - PERICARDIAL EFFUSION [None]
  - PLANTAR FASCIITIS [None]
  - PLEURAL EFFUSION [None]
  - POSTOPERATIVE INFECTION [None]
  - POSTPERICARDIOTOMY SYNDROME [None]
  - PROSTATIC OBSTRUCTION [None]
  - PROSTATITIS [None]
  - PSEUDOPHAKIA [None]
  - RHINITIS [None]
  - SPINAL OSTEOARTHRITIS [None]
  - TRICUSPID VALVE INCOMPETENCE [None]
  - ULNAR NERVE INJURY [None]
  - VENOUS THROMBOSIS LIMB [None]
  - VENTRICULAR HYPERTROPHY [None]
  - VOMITING [None]
